FAERS Safety Report 17795929 (Version 2)
Quarter: 2020Q2

REPORT INFORMATION
  Report Type: Spontaneous
  Country: US (occurrence: US)
  Receive Date: 20200516
  Receipt Date: 20200616
  Transmission Date: 20200714
  Serious: No
  Sender: FDA-Public Use
  Company Number: NVSC2020US133970

PATIENT
  Sex: Male

DRUGS (2)
  1. AFINITOR [Suspect]
     Active Substance: EVEROLIMUS
     Indication: METASTASES TO LUNG
     Dosage: UNK
     Route: 065
     Dates: start: 20200331
  2. LENVIMA [Suspect]
     Active Substance: LENVATINIB
     Indication: METASTASES TO LUNG
     Dosage: 10 MG, QD
     Route: 048
     Dates: start: 20200331

REACTIONS (2)
  - Fatigue [Not Recovered/Not Resolved]
  - Diarrhoea [Not Recovered/Not Resolved]
